FAERS Safety Report 6804992-2 (Version None)
Quarter: 2010Q2

REPORT INFORMATION
  Report Type: 
  Country: None (occurrence: None)
  Receive Date: 20100628
  Receipt Date: 20100628
  Transmission Date: 20101027
  Serious: Yes (Disabling)
  Sender: FDA-Public Use
  Company Number: None

PATIENT
  Age: 72 Year
  Sex: Female
  Weight: 76.2043 kg

DRUGS (1)
  1. WARFARIN SODIUM [Suspect]
     Indication: ANTICOAGULANT THERAPY
     Dates: start: 20020101, end: 20040101

REACTIONS (5)
  - DYSPNOEA [None]
  - HEART RATE IRREGULAR [None]
  - MUSCLE SPASMS [None]
  - PAIN [None]
  - TOOTH DISORDER [None]
